FAERS Safety Report 19285868 (Version 1)
Quarter: 2021Q2

REPORT INFORMATION
  Report Type: Spontaneous
  Country: JP (occurrence: JP)
  Receive Date: 20210521
  Receipt Date: 20210521
  Transmission Date: 20210717
  Serious: Yes (Hospitalization, Other)
  Sender: FDA-Public Use
  Company Number: JP-NOVAST LABORATORIES LTD.-2021NOV000257

PATIENT
  Age: 72 Year
  Sex: Female

DRUGS (2)
  1. CARBOPLATIN. [Suspect]
     Active Substance: CARBOPLATIN
     Indication: ENDOMETRIAL CANCER STAGE III
     Dosage: 5 MG/ML PER MINUTE
     Route: 065
  2. PACLITAXEL. [Suspect]
     Active Substance: PACLITAXEL
     Indication: ENDOMETRIAL CANCER STAGE III
     Dosage: 175 MILLIGRAM/SQ. METER, 3?HOUR
     Route: 042

REACTIONS (3)
  - Sepsis [Recovered/Resolved]
  - Neutropenic colitis [Recovered/Resolved]
  - Disseminated intravascular coagulation [Recovered/Resolved]
